FAERS Safety Report 13906442 (Version 2)
Quarter: 2018Q2

REPORT INFORMATION
  Report Type: Spontaneous
  Country: MA (occurrence: MA)
  Receive Date: 20170825
  Receipt Date: 20180610
  Transmission Date: 20180711
  Serious: Yes (Death, Life-Threatening, Other)
  Sender: FDA-Public Use
  Company Number: PHHY2017MA117161

PATIENT
  Age: 43 Year
  Sex: Male

DRUGS (8)
  1. METHOTREXATE. [Suspect]
     Active Substance: METHOTREXATE
     Indication: LYMPHOMA
     Dosage: 3000 MG/M2, UNK
     Route: 065
  2. L ASPARAGINASE [Suspect]
     Active Substance: ASPARAGINASE
     Indication: GASTROINTESTINAL LYMPHOMA
     Dosage: 6000 IU/M2, (D2, D4, D6, D8)
     Route: 065
  3. L ASPARAGINASE [Suspect]
     Active Substance: ASPARAGINASE
     Indication: ANGIOCENTRIC LYMPHOMA
  4. METHOTREXATE. [Suspect]
     Active Substance: METHOTREXATE
     Indication: ANGIOCENTRIC LYMPHOMA
  5. DEXAMETHASONE. [Suspect]
     Active Substance: DEXAMETHASONE
     Indication: ANGIOCENTRIC LYMPHOMA
  6. IFOSFAMIDE. [Suspect]
     Active Substance: IFOSFAMIDE
     Indication: LYMPHOMA
     Route: 065
  7. ETOPOSIDE. [Concomitant]
     Active Substance: ETOPOSIDE
     Indication: LYMPHOMA
     Route: 065
  8. DEXAMETHASONE. [Suspect]
     Active Substance: DEXAMETHASONE
     Indication: GASTROINTESTINAL LYMPHOMA
     Dosage: 40 MG, QD (D1-D4)
     Route: 065

REACTIONS (6)
  - Disease progression [Fatal]
  - Haematotoxicity [Unknown]
  - Treatment failure [Fatal]
  - Diabetes mellitus [Unknown]
  - Toxicity to various agents [Unknown]
  - Mucosal toxicity [Unknown]
